FAERS Safety Report 21877149 (Version 1)
Quarter: 2023Q1

REPORT INFORMATION
  Report Type: Report from Study
  Country: US (occurrence: US)
  Receive Date: 20230118
  Receipt Date: 20230118
  Transmission Date: 20230418
  Serious: No
  Sender: FDA-Public Use
  Company Number: US-ABBVIE-4239411

PATIENT
  Sex: Male
  Weight: 84.821 kg

DRUGS (4)
  1. HUMIRA [Suspect]
     Active Substance: ADALIMUMAB
     Indication: Psoriatic arthropathy
     Route: 058
     Dates: end: 2022
  2. HUMIRA [Suspect]
     Active Substance: ADALIMUMAB
     Indication: Psoriasis
  3. LOSARTAN [Concomitant]
     Active Substance: LOSARTAN
     Indication: Hypertension
  4. CELEBREX [Concomitant]
     Active Substance: CELECOXIB
     Indication: Arthralgia

REACTIONS (2)
  - Psoriasis [Not Recovered/Not Resolved]
  - Arthralgia [Recovering/Resolving]
